FAERS Safety Report 4459471-7 (Version None)
Quarter: 2004Q3

REPORT INFORMATION
  Report Type: 
  Country: None (occurrence: None)
  Receive Date: 20040927
  Receipt Date: 20040916
  Transmission Date: 20050211
  Serious: Yes (Hospitalization)
  Sender: FDA-Public Use
  Company Number: PHEH2004US10010

PATIENT
  Age: 35 Year
  Sex: Female

DRUGS (1)
  1. TEGRETOL-XR [Suspect]
     Indication: CONVULSION
     Dosage: 200MGAM+400MGPM
     Route: 048
     Dates: start: 19900101

REACTIONS (10)
  - ABDOMINAL PAIN [None]
  - ANOREXIA [None]
  - CLOSTRIDIAL INFECTION [None]
  - DIARRHOEA [None]
  - EOSINOPHILIA [None]
  - HYPOTENSION [None]
  - NEUTROPENIA [None]
  - PLATELET COUNT DECREASED [None]
  - PYREXIA [None]
  - WEIGHT DECREASED [None]
